FAERS Safety Report 8780462 (Version 1)
Quarter: 2012Q4

REPORT INFORMATION
  Report Type: Spontaneous
  Country: GB (occurrence: None)
  Receive Date: 20120830
  Receipt Date: 20120830
  Transmission Date: 20130627
  Serious: Yes (Hospitalization)
  Sender: FDA-Public Use
  Company Number: FK201202429

PATIENT
  Age: 85 Year
  Sex: Male

DRUGS (3)
  1. PROPOFOL [Suspect]
     Route: 042
     Dates: start: 20120209, end: 20120209
  2. CEFTRIAXONE [Suspect]
     Route: 042
     Dates: start: 20120203, end: 20120208
  3. AMIODARONE HYDROCHLORIDE [Suspect]
     Dates: start: 20120206, end: 20120210

REACTIONS (3)
  - Leukopenia [None]
  - Thrombocytopenia [None]
  - Autoimmune neutropenia [None]
